FAERS Safety Report 5348693-9 (Version None)
Quarter: 2007Q2

REPORT INFORMATION
  Report Type: 
  Country: None (occurrence: None)
  Receive Date: 20070605
  Receipt Date: 20070529
  Transmission Date: 20071010
  Serious: Yes (Hospitalization)
  Sender: FDA-Public Use
  Company Number: 2007BI007030

PATIENT
  Age: 49 Year
  Sex: Female

DRUGS (13)
  1. AVONEX [Suspect]
     Indication: MULTIPLE SCLEROSIS
     Dosage: 30 UG; QW; IM
     Route: 030
     Dates: start: 19970618, end: 20030821
  2. AVONEX [Suspect]
     Indication: MULTIPLE SCLEROSIS
     Dosage: 30 UG; QW; IM
     Route: 030
     Dates: start: 20051101
  3. TRIAMTERENE [Concomitant]
  4. HYDROCHLOROTHIAZIDE [Concomitant]
  5. OXYBUTRIN [Concomitant]
  6. ATENOLOL [Concomitant]
  7. LORATADINE [Concomitant]
  8. FLECAINIDE ACETATE [Concomitant]
  9. PROVIGIL [Concomitant]
  10. NORINYL [Concomitant]
  11. PRILOSEC [Concomitant]
  12. FLONASE [Concomitant]
  13. ASPIRIN [Concomitant]

REACTIONS (6)
  - ASTHENIA [None]
  - ATRIAL FIBRILLATION [None]
  - DIZZINESS [None]
  - HYPOTENSION [None]
  - LOSS OF CONSCIOUSNESS [None]
  - TINNITUS [None]
